FAERS Safety Report 8812707 (Version 1)
Quarter: 2012Q4

REPORT INFORMATION
  Report Type: 
  Country: US (occurrence: US)
  Receive Date: 20120927
  Receipt Date: 20120927
  Transmission Date: 20130627
  Serious: Yes (Other)
  Sender: FDA-Public Use
  Company Number: US-ELI_LILLY_AND_COMPANY-US201209005735

PATIENT
  Age: 62 None
  Sex: Male
  Weight: 215.42 kg

DRUGS (13)
  1. BYDUREON [Suspect]
     Indication: INSULIN-REQUIRING TYPE 2 DIABETES MELLITUS
     Dosage: 2 mg, weekly (1/W)
     Route: 058
     Dates: start: 201208, end: 20120910
  2. LANTUS [Concomitant]
     Indication: INSULIN-REQUIRING TYPE 2 DIABETES MELLITUS
     Dosage: 75 u, bid
     Route: 058
  3. HUMALOG [Concomitant]
     Indication: INSULIN-REQUIRING TYPE 2 DIABETES MELLITUS
     Dosage: UNK UNK, unknown
  4. ACCUPRIL [Concomitant]
     Dosage: 20 mg, bid
     Route: 048
  5. TENORMIN [Concomitant]
     Dosage: 20 mg, bid
     Route: 048
  6. CARTIA XT [Concomitant]
     Dosage: 120 mg, qd
     Route: 048
  7. AMIODARONE [Concomitant]
     Indication: ATRIAL FIBRILLATION
     Dosage: 200 mg, qd
     Route: 048
  8. AMIODARONE [Concomitant]
     Dosage: 1000 mg, qd
     Route: 048
  9. PROTONIX [Concomitant]
     Dosage: 40 mg, qd
     Route: 048
  10. PREDNISONE [Concomitant]
     Dosage: 7.5 mg, qd
     Route: 048
  11. COUMADIN [Concomitant]
     Dosage: 6 mg, qd
     Route: 048
  12. COUMADIN [Concomitant]
     Dosage: 7 mg, qd
     Route: 048
  13. ADVAIR DISKUS [Concomitant]
     Dosage: UNK UNK, bid
     Route: 055

REACTIONS (8)
  - Atrial fibrillation [Recovered/Resolved]
  - Heart rate increased [Not Recovered/Not Resolved]
  - Electrocardiogram QT prolonged [Unknown]
  - Intentional drug misuse [Not Recovered/Not Resolved]
  - Weight decreased [Unknown]
  - Nausea [Recovered/Resolved]
  - Feeling jittery [Recovered/Resolved]
  - Off label use [Recovered/Resolved]
